FAERS Safety Report 19275396 (Version 1)
Quarter: 2021Q2

REPORT INFORMATION
  Report Type: Spontaneous
  Country: US (occurrence: US)
  Receive Date: 20210519
  Receipt Date: 20210519
  Transmission Date: 20210717
  Serious: No
  Sender: FDA-Public Use
  Company Number: US-BIOGEN-2021BI01009526

PATIENT
  Sex: Female

DRUGS (1)
  1. TECFIDERA [Suspect]
     Active Substance: DIMETHYL FUMARATE
     Indication: MULTIPLE SCLEROSIS
     Route: 048
     Dates: start: 20150130, end: 20210203

REACTIONS (6)
  - Flushing [Unknown]
  - Hypersensitivity [Unknown]
  - Fatigue [Unknown]
  - Balance disorder [Unknown]
  - Diarrhoea [Unknown]
  - Cognitive disorder [Unknown]
